FAERS Safety Report 9983480 (Version 2)
Quarter: 2014Q2

REPORT INFORMATION
  Report Type: Spontaneous
  Country: US (occurrence: US)
  Receive Date: 20140307
  Receipt Date: 20140527
  Transmission Date: 20141212
  Serious: Yes (Hospitalization, Other)
  Sender: FDA-Public Use
  Company Number: US-BAYER-2014-033885

PATIENT
  Age: 30 Year
  Sex: Female

DRUGS (2)
  1. MIRENA [Suspect]
     Indication: CONTRACEPTION
     Dosage: DAILY DOSE 20 ?G
     Route: 015
     Dates: start: 20091019, end: 201103
  2. ZOLOFT [Concomitant]
     Indication: DEPRESSION
     Dosage: UNK
     Route: 048
     Dates: start: 2009, end: 2012

REACTIONS (11)
  - Uterine perforation [None]
  - Uterine haemorrhage [None]
  - Infection [None]
  - Amenorrhoea [None]
  - Injury [None]
  - Hydrometra [None]
  - Uterine scar [None]
  - Pelvic pain [None]
  - Medical device pain [None]
  - Abdominal distension [None]
  - Device issue [None]
